FAERS Safety Report 8881666 (Version 2)
Quarter: 2015Q4

REPORT INFORMATION
  Report Type: Report from Study
  Country: US (occurrence: US)
  Receive Date: 20121102
  Receipt Date: 20151112
  Transmission Date: 20160305
  Serious: Yes (Hospitalization)
  Sender: FDA-Public Use
  Company Number: PHHO2012US014486

PATIENT
  Age: 41 Year
  Sex: Male
  Weight: 83.86 kg

DRUGS (4)
  1. BYL719 [Suspect]
     Active Substance: ALPELISIB
     Indication: NEOPLASM
     Dosage: 80 MG, QD
     Route: 048
     Dates: start: 20120914, end: 20121004
  2. RADIATION THERAPY [Suspect]
     Active Substance: RADIATION THERAPY
     Indication: MASS
     Dosage: UNK
     Route: 065
     Dates: start: 20121026, end: 20121026
  3. MEK162 [Suspect]
     Active Substance: BINIMETINIB
     Indication: NEOPLASM
     Dosage: 45 MG, BID
     Route: 048
     Dates: start: 20120914, end: 20121004
  4. LEVOFLOXACIN. [Suspect]
     Active Substance: LEVOFLOXACIN
     Indication: INFECTION
     Dosage: UNK
     Route: 065
     Dates: start: 2012, end: 2012

REACTIONS (3)
  - Vomiting [Not Recovered/Not Resolved]
  - Nausea [Not Recovered/Not Resolved]
  - Soft tissue infection [Unknown]

NARRATIVE: CASE EVENT DATE: 20120928
